FAERS Safety Report 7361174-6 (Version None)
Quarter: 2011Q1

REPORT INFORMATION
  Report Type: 
  Country: None (occurrence: None)
  Receive Date: 20110318
  Receipt Date: 20110307
  Transmission Date: 20110831
  Serious: Yes (Other)
  Sender: FDA-Public Use
  Company Number: JP-SANOFI-AVENTIS-2011SA015086

PATIENT
  Age: 80 Year
  Sex: Male

DRUGS (1)
  1. MYSLEE [Suspect]
     Route: 048

REACTIONS (1)
  - RESPIRATORY DEPRESSION [None]
